FAERS Safety Report 7084187-0 (Version None)
Quarter: 2010Q4

REPORT INFORMATION
  Report Type: 
  Country: None (occurrence: None)
  Receive Date: 20101104
  Receipt Date: 20101101
  Transmission Date: 20110411
  Serious: Yes (Other)
  Sender: FDA-Public Use
  Company Number: GB-ROXANE LABORATORIES, INC.-2010-RO-01447RO

PATIENT
  Age: 47 Year
  Sex: Female

DRUGS (3)
  1. ROPINIROLE [Suspect]
     Indication: PARKINSON'S DISEASE
     Dosage: 6 MG
  2. ROPINIROLE [Suspect]
     Dosage: 10 MG
  3. SINEMET CR [Suspect]
     Indication: PARKINSON'S DISEASE

REACTIONS (1)
  - SOMATIC DELUSION [None]
